FAERS Safety Report 8077206-6 (Version None)
Quarter: 2012Q1

REPORT INFORMATION
  Report Type: 
  Country: None (occurrence: None)
  Receive Date: 20120127
  Receipt Date: 20120120
  Transmission Date: 20120608
  Serious: Yes (Hospitalization, Other)
  Sender: FDA-Public Use
  Company Number: US-ROCHE-795564

PATIENT
  Sex: Female
  Weight: 79.45 kg

DRUGS (2)
  1. ACCUTANE [Suspect]
     Indication: ACNE
     Dates: start: 19961001, end: 19961201
  2. ACCUTANE [Suspect]

REACTIONS (11)
  - COLONIC POLYP [None]
  - FEMALE GENITAL TRACT FISTULA [None]
  - INFLAMMATORY BOWEL DISEASE [None]
  - IRRITABLE BOWEL SYNDROME [None]
  - COLITIS ULCERATIVE [None]
  - CROHN'S DISEASE [None]
  - ANAL FISSURE [None]
  - DEPRESSION [None]
  - PYODERMA GANGRENOSUM [None]
  - BIPOLAR DISORDER [None]
  - SUICIDAL IDEATION [None]
